FAERS Safety Report 7758049-7 (Version None)
Quarter: 2011Q3

REPORT INFORMATION
  Report Type: 
  Country: None (occurrence: None)
  Receive Date: 20110919
  Receipt Date: 20110909
  Transmission Date: 20111222
  Serious: No
  Sender: FDA-Public Use
  Company Number: US-BIOGENIDEC-2011BI034986

PATIENT
  Age: 52 Year
  Sex: Female

DRUGS (2)
  1. AVONEX [Concomitant]
     Indication: MULTIPLE SCLEROSIS
     Route: 030
     Dates: start: 19980701
  2. TYSABRI [Suspect]
     Indication: MULTIPLE SCLEROSIS
     Route: 042
     Dates: start: 20080822

REACTIONS (5)
  - FATIGUE [None]
  - FEELING COLD [None]
  - LOSS OF CONTROL OF LEGS [None]
  - FEELING HOT [None]
  - HYPOAESTHESIA [None]
